FAERS Safety Report 9106843 (Version 1)
Quarter: 2013Q1

REPORT INFORMATION
  Report Type: Spontaneous
  Country: CA (occurrence: CA)
  Receive Date: 20130221
  Receipt Date: 20130221
  Transmission Date: 20140127
  Serious: Yes (Hospitalization)
  Sender: FDA-Public Use
  Company Number: CA-BRISTOL-MYERS SQUIBB COMPANY-17375759

PATIENT
  Sex: Male

DRUGS (2)
  1. COUMADIN [Suspect]
  2. FLOMAX [Suspect]

REACTIONS (1)
  - Eye disorder [Unknown]
